FAERS Safety Report 8967831 (Version 1)
Quarter: 2012Q4

REPORT INFORMATION
  Report Type: Spontaneous
  Country: US (occurrence: None)
  Receive Date: 20121213
  Receipt Date: 20121213
  Transmission Date: 20130627
  Serious: Yes (Hospitalization)
  Sender: FDA-Public Use
  Company Number: None

PATIENT
  Age: 74 Year
  Sex: Male
  Weight: 101.61 kg

DRUGS (2)
  1. XARELTO 15 MG JANSSEN [Suspect]
     Indication: STROKE
     Route: 048
     Dates: start: 20120830, end: 20121205
  2. XARELTO 15 MG JANSSEN [Suspect]
     Indication: PROPHYLAXIS
     Route: 048
     Dates: start: 20120830, end: 20121205

REACTIONS (1)
  - Upper gastrointestinal haemorrhage [None]
